FAERS Safety Report 6803448-0 (Version None)
Quarter: 2010Q2

REPORT INFORMATION
  Report Type: 
  Country: None (occurrence: None)
  Receive Date: 20100628
  Receipt Date: 20100621
  Transmission Date: 20101027
  Serious: Yes (Other)
  Sender: FDA-Public Use
  Company Number: US-JNJFOC-20100301965

PATIENT
  Sex: Female
  Weight: 81.19 kg

DRUGS (3)
  1. LEVAQUIN [Suspect]
     Indication: URINARY TRACT INFECTION
     Route: 048
  2. LEVAQUIN [Suspect]
     Indication: RENAL DISORDER
     Route: 048
  3. PREDNISONE [Suspect]
     Indication: ANTIINFLAMMATORY THERAPY

REACTIONS (3)
  - BURSITIS [None]
  - TENDON DISORDER [None]
  - TENDONITIS [None]
